FAERS Safety Report 9847654 (Version 1)
Quarter: 2014Q1

REPORT INFORMATION
  Report Type: Spontaneous
  Country: GB (occurrence: GB)
  Receive Date: 20140128
  Receipt Date: 20140128
  Transmission Date: 20141002
  Serious: Yes (Other)
  Sender: FDA-Public Use
  Company Number: GB-ASTRAZENECA-2014SE04910

PATIENT
  Age: 48 Year
  Sex: Male
  Weight: 75 kg

DRUGS (6)
  1. OMEPRAZOLE [Suspect]
     Route: 048
  2. ATAZANAVIR [Interacting]
     Route: 065
  3. ACICLOVIR [Concomitant]
     Dates: start: 20131114, end: 20131115
  4. HYLO-TEAR [Concomitant]
     Dates: start: 20140106, end: 20140107
  5. LACRI-LUBE [Concomitant]
     Dates: start: 20131003, end: 20131212
  6. LANSOPRAZOLE [Concomitant]

REACTIONS (2)
  - Drug interaction [Unknown]
  - Rash [Recovered/Resolved]
